FAERS Safety Report 9098778 (Version 1)
Quarter: 2013Q1

REPORT INFORMATION
  Report Type: Spontaneous
  Country: BR (occurrence: BR)
  Receive Date: 20130213
  Receipt Date: 20130213
  Transmission Date: 20140127
  Serious: Yes (Other)
  Sender: FDA-Public Use
  Company Number: BR-PFIZER INC-2013054041

PATIENT
  Age: 52 Year
  Sex: Female
  Weight: 90 kg

DRUGS (4)
  1. LYRICA [Suspect]
     Indication: PAIN
     Dosage: UNK
     Route: 048
  2. ALENDIL CALCIO D [Concomitant]
     Indication: BONE DISORDER
     Dosage: ONE TABLET DAILY
     Dates: start: 201301
  3. LEXOTAN [Concomitant]
     Indication: MUSCLE RELAXANT THERAPY
     Dosage: ONE TABLET AT NIGHT
     Dates: start: 2008
  4. OMEPRAZOLE [Concomitant]
     Indication: GASTRIC DISORDER
     Dosage: ONE TABLET DAILY
     Dates: start: 201211

REACTIONS (3)
  - Spinal disorder [Unknown]
  - Bone disorder [Unknown]
  - Bone marrow disorder [Unknown]
